FAERS Safety Report 7602989-6 (Version None)
Quarter: 2011Q3

REPORT INFORMATION
  Report Type: 
  Country: None (occurrence: None)
  Receive Date: 20110712
  Receipt Date: 20110608
  Transmission Date: 20111222
  Serious: No
  Sender: FDA-Public Use
  Company Number: A0930776A

PATIENT
  Sex: Male

DRUGS (1)
  1. JALYN [Suspect]
     Route: 048
     Dates: start: 20110529

REACTIONS (2)
  - NASAL CONGESTION [None]
  - DYSPNOEA [None]
